FAERS Safety Report 13922020 (Version 2)
Quarter: 2017Q3

REPORT INFORMATION
  Report Type: Report from Study
  Country: US (occurrence: US)
  Receive Date: 20170830
  Receipt Date: 20170830
  Transmission Date: 20171127
  Serious: No
  Sender: FDA-Public Use
  Company Number: PHEH2017US027024

PATIENT
  Sex: Female

DRUGS (2)
  1. LISINOPRIL. [Suspect]
     Active Substance: LISINOPRIL
     Indication: PRODUCT USED FOR UNKNOWN INDICATION
     Route: 065
  2. ENTRESTO [Suspect]
     Active Substance: SACUBITRIL\VALSARTAN
     Indication: CARDIAC FAILURE
     Dosage: 1 DF (24/26), QD
     Route: 048

REACTIONS (6)
  - Hypersensitivity [Unknown]
  - Blood pressure decreased [Unknown]
  - Cough [Unknown]
  - Contraindicated product administered [Unknown]
  - Nasal congestion [Unknown]
  - Inappropriate schedule of drug administration [Unknown]
